FAERS Safety Report 8826543 (Version 1)
Quarter: 2012Q4

REPORT INFORMATION
  Report Type: 
  Country: BR (occurrence: BR)
  Receive Date: 20121005
  Receipt Date: 20121005
  Transmission Date: 20130627
  Serious: Yes (Other)
  Sender: FDA-Public Use
  Company Number: BR-ROCHE-1096546

PATIENT
  Age: 89 Year
  Weight: 51 kg

DRUGS (4)
  1. MABTHERA [Suspect]
     Indication: LYMPHOMA
     Route: 042
     Dates: start: 20120420
  2. GRANISETRON [Concomitant]
     Route: 040
     Dates: start: 20120424
  3. DEXAMETHASONE [Concomitant]
     Indication: PREMEDICATION
     Route: 040
     Dates: start: 20120424
  4. PARACETAMOL [Concomitant]
     Indication: PREMEDICATION
     Route: 048

REACTIONS (3)
  - Tremor [Recovered/Resolved]
  - Hypotension [Recovered/Resolved]
  - Hypothermia [Recovered/Resolved]
